FAERS Safety Report 10446642 (Version 2)
Quarter: 2015Q2

REPORT INFORMATION
  Report Type: Spontaneous
  Country: US (occurrence: US)
  Receive Date: 20140911
  Receipt Date: 20150629
  Transmission Date: 20150821
  Serious: Yes (Hospitalization, Other)
  Sender: FDA-Public Use
  Company Number: US-AUROBINDO-AUR-APL-2014-09532

PATIENT
  Age: 14 Year
  Sex: Female

DRUGS (1)
  1. OXYCODONE HYDROCHLORIDE TABLETS USP 5 MG [Suspect]
     Active Substance: OXYCODONE HYDROCHLORIDE
     Indication: PRODUCT USED FOR UNKNOWN INDICATION
     Dosage: 15 DF, UNK
     Route: 048

REACTIONS (13)
  - Central nervous system lesion [Recovered/Resolved]
  - Akathisia [Recovered/Resolved]
  - Overdose [Recovered/Resolved]
  - Apnoea [Recovered/Resolved]
  - Unresponsive to stimuli [Recovered/Resolved]
  - Sleep disorder [Recovered/Resolved]
  - Toxic encephalopathy [Recovered/Resolved]
  - Ballismus [Recovered/Resolved]
  - Movement disorder [Recovered/Resolved]
  - Hypopnoea [Recovered/Resolved]
  - Cognitive disorder [Recovered/Resolved]
  - Mental status changes [Recovered/Resolved]
  - Pulse absent [Recovered/Resolved]
